FAERS Safety Report 6121759-1 (Version None)
Quarter: 2009Q1

REPORT INFORMATION
  Report Type: 
  Country: None (occurrence: None)
  Receive Date: 20090317
  Receipt Date: 20090316
  Transmission Date: 20090719
  Serious: Yes (Other)
  Sender: FDA-Public Use
  Company Number: CA-ROXANE LABORATORIES, INC.-2009-RO-00246RO

PATIENT
  Age: 15 Year
  Sex: Male

DRUGS (3)
  1. PREDNISONE TAB [Suspect]
     Indication: CROHN'S DISEASE
     Route: 048
  2. AZATHIOPRINE [Suspect]
     Indication: CROHN'S DISEASE
  3. MERCAPTOPURINE [Concomitant]
     Indication: CROHN'S DISEASE

REACTIONS (1)
  - HEPATOTOXICITY [None]
